FAERS Safety Report 7704992-4 (Version None)
Quarter: 2011Q3

REPORT INFORMATION
  Report Type: 
  Country: None (occurrence: None)
  Receive Date: 20110823
  Receipt Date: 20110722
  Transmission Date: 20111222
  Serious: No
  Sender: FDA-Public Use
  Company Number: US-BAYER-2011-064893

PATIENT
  Sex: Female

DRUGS (1)
  1. ALEVE (CAPLET) [Suspect]
     Indication: PROCEDURAL PAIN
     Dosage: UNK
     Route: 048

REACTIONS (4)
  - PAIN IN EXTREMITY [None]
  - HYPOMENORRHOEA [None]
  - DYSMENORRHOEA [None]
  - NAUSEA [None]
